FAERS Safety Report 14723389 (Version 1)
Quarter: 2018Q2

REPORT INFORMATION
  Report Type: Report from Study
  Country: US (occurrence: US)
  Receive Date: 20180405
  Receipt Date: 20180405
  Transmission Date: 20180711
  Serious: Yes (Other)
  Sender: FDA-Public Use
  Company Number: US-GILEAD-2018-0330522

PATIENT
  Age: 79 Year
  Sex: Female
  Weight: 47.17 kg

DRUGS (1)
  1. AMBRISENTAN [Suspect]
     Active Substance: AMBRISENTAN
     Indication: PULMONARY ARTERIAL HYPERTENSION
     Dosage: 10 MG, QD
     Route: 065

REACTIONS (6)
  - Fall [Unknown]
  - Pelvic fracture [Unknown]
  - Nerve compression [Unknown]
  - Depression [Unknown]
  - Limb operation [Unknown]
  - Weight decreased [Unknown]
